FAERS Safety Report 9543642 (Version 1)
Quarter: 2013Q3

REPORT INFORMATION
  Report Type: Spontaneous
  Country: US (occurrence: US)
  Receive Date: 20130923
  Receipt Date: 20130923
  Transmission Date: 20140515
  Serious: No
  Sender: FDA-Public Use
  Company Number: US-BAYER-2013-114503

PATIENT
  Age: 40 Year
  Sex: Female

DRUGS (2)
  1. GADAVIST [Suspect]
     Indication: NUCLEAR MAGNETIC RESONANCE IMAGING BRAIN
     Dosage: UNK UNK, ONCE
     Route: 042
     Dates: start: 20130911, end: 20130911
  2. GADAVIST [Suspect]
     Indication: VERTIGO

REACTIONS (3)
  - Renal pain [Not Recovered/Not Resolved]
  - Migraine [Not Recovered/Not Resolved]
  - Oedema peripheral [Not Recovered/Not Resolved]
